FAERS Safety Report 6368370-5 (Version None)
Quarter: 2009Q3

REPORT INFORMATION
  Report Type: 
  Country: None (occurrence: None)
  Receive Date: 20090909
  Receipt Date: 20080707
  Transmission Date: 20100115
  Serious: No
  Sender: FDA-Public Use
  Company Number: 002#2#2008-00556

PATIENT
  Sex: Female
  Weight: 63.9572 kg

DRUGS (3)
  1. ROTIGOTINE [Suspect]
     Indication: PARKINSON'S DISEASE
     Dosage: SEE IMAGE
     Route: 062
     Dates: start: 20070101, end: 20080401
  2. CARBIDOPA AND LEVODOPA [Concomitant]
  3. AMANTADINE [Concomitant]

REACTIONS (1)
  - PRODUCT QUALITY ISSUE [None]
